FAERS Safety Report 18045795 (Version 2)
Quarter: 2020Q3

REPORT INFORMATION
  Report Type: Spontaneous
  Country: US (occurrence: US)
  Receive Date: 20200720
  Receipt Date: 20200819
  Transmission Date: 20201103
  Serious: Yes (Hospitalization)
  Sender: FDA-Public Use
  Company Number: US-B.I. PHARMACEUTICALS,INC./RIDGEFIELD-2020-US-035578

PATIENT
  Age: 82 Year
  Sex: Male

DRUGS (4)
  1. ACTOS [Concomitant]
     Active Substance: PIOGLITAZONE HYDROCHLORIDE
     Indication: PRODUCT USED FOR UNKNOWN INDICATION
     Dosage: 15MG BID
     Route: 065
     Dates: start: 2019
  2. TRADJENTA [Suspect]
     Active Substance: LINAGLIPTIN
     Indication: GLYCOSYLATED HAEMOGLOBIN INCREASED
     Dosage: 5MG ONCE DAILY
     Route: 065
     Dates: start: 201802, end: 202001
  3. TRADJENTA [Suspect]
     Active Substance: LINAGLIPTIN
     Dosage: 2 TABLETS OF 5MG DAILY
     Route: 065
     Dates: start: 202001
  4. METFORMIN [Suspect]
     Active Substance: METFORMIN HYDROCHLORIDE
     Indication: PRODUCT USED FOR UNKNOWN INDICATION
     Dosage: 1000MG BID
     Route: 065
     Dates: start: 2010

REACTIONS (4)
  - Drug ineffective [Unknown]
  - Overdose [Unknown]
  - Rhinorrhoea [Not Recovered/Not Resolved]
  - Angina pectoris [Recovered/Resolved]

NARRATIVE: CASE EVENT DATE: 201907
